FAERS Safety Report 8840017 (Version 3)
Quarter: 2013Q1

REPORT INFORMATION
  Report Type: Spontaneous
  Country: US (occurrence: US)
  Receive Date: 20121015
  Receipt Date: 20130220
  Transmission Date: 20140127
  Serious: Yes (Other)
  Sender: FDA-Public Use
  Company Number: US-PFIZER INC-2012253882

PATIENT
  Age: 80 Year
  Sex: Female

DRUGS (4)
  1. LYRICA [Suspect]
     Dosage: 60 MG, 2X/DAY
  2. METFORMIN [Concomitant]
     Dosage: UNK
  3. AMLODIPINE [Concomitant]
     Dosage: UNK
  4. GEMFIBROZIL [Concomitant]
     Dosage: UNK

REACTIONS (2)
  - Lung neoplasm malignant [Unknown]
  - Pain [Unknown]
